FAERS Safety Report 7880036-9 (Version None)
Quarter: 2011Q4

REPORT INFORMATION
  Report Type: 
  Country: None (occurrence: None)
  Receive Date: 20111101
  Receipt Date: 20111025
  Transmission Date: 20120403
  Serious: Yes (Other)
  Sender: FDA-Public Use
  Company Number: US-AMGEN-USASP2011052258

PATIENT
  Sex: Female

DRUGS (24)
  1. FOLIC ACID [Concomitant]
     Dosage: 60 MG, QD
  2. PAROXETINE HCL [Concomitant]
     Dosage: 10 MG, QD
     Route: 048
  3. PREMARIN [Concomitant]
     Dosage: 0.45 MG, QD
     Route: 048
  4. ZOMIG [Concomitant]
     Dosage: 5 MG, PRN
     Route: 048
  5. ENBREL [Suspect]
     Indication: RHEUMATOID ARTHRITIS
     Dosage: 50 MG, QWK
     Dates: start: 20110922
  6. HYDROCHLOROTHIAZIDE [Concomitant]
     Dosage: 25 MG, QD
     Route: 048
  7. ASACOL [Concomitant]
     Dosage: 800 MG, TID
     Route: 048
     Dates: start: 20110922
  8. AMITIZA [Concomitant]
     Dosage: 8 MUG, Q12H
     Route: 048
  9. PLAQUENIL [Concomitant]
     Dosage: 20 MG, BID
     Route: 048
  10. SUMATRIPTAN SUCCINATE [Concomitant]
     Dosage: 50 MG, PRN
     Route: 048
  11. VITAMIN D [Concomitant]
     Dosage: 2000 UNIT, QD
     Route: 048
  12. POTASSIUM CHLORIDE [Concomitant]
     Dosage: 10 MEQ, QD
     Route: 048
  13. SKELAXIN [Concomitant]
     Dosage: 800 MG, QD
     Route: 048
  14. ENBREL [Suspect]
     Dosage: UNK
     Dates: start: 20080101
  15. HUMIRA [Concomitant]
     Dosage: UNK
  16. CENTRUM SILVER                     /01292501/ [Concomitant]
     Dosage: 10 MG, QD
     Route: 048
  17. HYDROCODONE/ACETAMINOPHEN          /00607101/ [Concomitant]
     Dosage: 325 MG, Q6H
     Route: 048
  18. LIPITOR [Concomitant]
     Dosage: 10 MG, QD
     Route: 048
  19. LOTRONEX                           /01482801/ [Concomitant]
     Dosage: 1 MG, QD
     Route: 048
  20. TRAMADOL HYDROCHLORIDE AND ACETAMINOPHEN [Concomitant]
     Dosage: 37.5 MG, Q6H
     Route: 048
  21. BENICAR [Concomitant]
     Dosage: 20 MG, QD
     Route: 048
  22. LOMOTIL [Concomitant]
     Dosage: 5 MG, Q4H
     Route: 048
  23. MAGNESIUM [Concomitant]
     Dosage: 250 MG, QD
     Route: 048
  24. DIAZEPAM [Concomitant]
     Dosage: 10 MG, PRN
     Route: 048

REACTIONS (4)
  - JOINT LOCK [None]
  - INJECTION SITE PAIN [None]
  - IRRITABLE BOWEL SYNDROME [None]
  - BACK PAIN [None]
